FAERS Safety Report 6568910-7 (Version None)
Quarter: 2010Q1

REPORT INFORMATION
  Report Type: 
  Country: None (occurrence: None)
  Receive Date: 20100128
  Receipt Date: 20100122
  Transmission Date: 20100710
  Serious: Yes (Hospitalization)
  Sender: FDA-Public Use
  Company Number: 2010SP005081

PATIENT
  Age: 33 Year
  Sex: Female
  Weight: 44 kg

DRUGS (10)
  1. FOLLISTIM [Suspect]
     Indication: IN VITRO FERTILISATION
     Dosage: 150 IU;QD;SC
     Route: 058
     Dates: start: 20071012, end: 20071022
  2. DUOLUTON /00948701/ (CON.) [Concomitant]
  3. BUSERECUR (CON.) [Concomitant]
  4. HCG (CON.) [Concomitant]
  5. LUTORAL (CON.) [Concomitant]
  6. BUFFERIN (CON.) [Concomitant]
  7. PROGE DEPOT (CON.) [Concomitant]
  8. PELANIN (CON.) [Concomitant]
  9. PROGE DEPOT (CON.) [Concomitant]
  10. PELANIN (CON.) [Concomitant]

REACTIONS (4)
  - CAESAREAN SECTION [None]
  - DRUG EXPOSURE BEFORE PREGNANCY [None]
  - PLACENTA PRAEVIA [None]
  - PREGNANCY [None]
